FAERS Safety Report 13449587 (Version 1)
Quarter: 2017Q2

REPORT INFORMATION
  Report Type: Spontaneous
  Country: GB (occurrence: GB)
  Receive Date: 20170417
  Receipt Date: 20170417
  Transmission Date: 20170830
  Serious: Yes (Other)
  Sender: FDA-Public Use
  Company Number: GB-MYLANLABS-2017M1022967

PATIENT

DRUGS (2)
  1. BISOPROLOL [Suspect]
     Active Substance: BISOPROLOL
  2. APIXABAN [Concomitant]
     Active Substance: APIXABAN
     Dates: start: 201608

REACTIONS (3)
  - Wheezing [Unknown]
  - Dyspnoea [Unknown]
  - Contraindicated product administered [Unknown]
